FAERS Safety Report 9284283 (Version 2)
Quarter: 2013Q3

REPORT INFORMATION
  Report Type: Report from Study
  Country: HR (occurrence: HR)
  Receive Date: 20130510
  Receipt Date: 20130701
  Transmission Date: 20140515
  Serious: Yes (Hospitalization)
  Sender: FDA-Public Use
  Company Number: HR-VERTEX PHARMACEUTICALS INC-2013-005901

PATIENT
  Age: 59 Year
  Sex: Male
  Weight: 82.4 kg

DRUGS (4)
  1. VX-950 (TELAPREVIR) [Suspect]
     Indication: CHRONIC HEPATITIS C
     Dosage: 750 MG, TID
     Route: 048
     Dates: start: 20130318, end: 20130507
  2. PEGASYS [Concomitant]
     Indication: CHRONIC HEPATITIS C
     Dosage: DOSAGE FORM: UNSPECIFIED
     Route: 058
     Dates: start: 20130318
  3. COPEGUS [Concomitant]
     Indication: CHRONIC HEPATITIS C
     Dosage: DOSAGE FORM: UNSPECIFIED
     Route: 048
     Dates: start: 20130318
  4. IRUZID [Concomitant]
     Indication: HYPERTENSION
     Dosage: DOSAGE FORM: UNSPECIFIED, DOSE=20/12.5MG; INITIATED 3-6 YEARS AGO.
     Route: 048

REACTIONS (1)
  - Erythema multiforme [Recovered/Resolved]
